FAERS Safety Report 13131414 (Version 2)
Quarter: 2017Q1

REPORT INFORMATION
  Report Type: Spontaneous
  Country: FR (occurrence: FR)
  Receive Date: 20170119
  Receipt Date: 20170125
  Transmission Date: 20170428
  Serious: No
  Sender: FDA-Public Use
  Company Number: FR-PFIZER INC-2017017402

PATIENT
  Age: 13 Month
  Sex: Male

DRUGS (3)
  1. COTRIMOXAZOLE [Concomitant]
     Active Substance: SULFAMETHOXAZOLE\TRIMETHOPRIM
     Indication: PROPHYLAXIS
     Dosage: UNK
  2. RAPAMUNE [Suspect]
     Active Substance: SIROLIMUS
     Indication: SKIN HAEMORRHAGE
     Dosage: 0.8 MG/M2, 2X/DAY
     Dates: start: 2016
  3. RAPAMUNE [Suspect]
     Active Substance: SIROLIMUS
     Indication: KLIPPEL-TRENAUNAY SYNDROME
     Dosage: 1 MG/M2, UNK
     Dates: start: 2016

REACTIONS (1)
  - Off label use [Unknown]
